FAERS Safety Report 6021321-5 (Version None)
Quarter: 2008Q4

REPORT INFORMATION
  Report Type: 
  Country: None (occurrence: None)
  Receive Date: 20081229
  Receipt Date: 20081223
  Transmission Date: 20090506
  Serious: Yes (Congenital Anomaly)
  Sender: FDA-Public Use
  Company Number: A0679810A

PATIENT
  Sex: Male

DRUGS (1)
  1. PAXIL [Suspect]
     Indication: DEPRESSION

REACTIONS (23)
  - AORTIC STENOSIS [None]
  - ASTHENIA [None]
  - ATRIAL SEPTAL DEFECT [None]
  - ATTENTION DEFICIT/HYPERACTIVITY DISORDER [None]
  - CARDIAC MURMUR [None]
  - CARDIOMEGALY [None]
  - CHEST PAIN [None]
  - DOUBLE OUTLET RIGHT VENTRICLE [None]
  - DRUG EXPOSURE DURING PREGNANCY [None]
  - ENCEPHALOMALACIA [None]
  - FATIGUE [None]
  - MUSCLE SPASMS [None]
  - PALPITATIONS [None]
  - PATENT DUCTUS ARTERIOSUS [None]
  - POST PROCEDURAL COMPLICATION [None]
  - PREMATURE BABY [None]
  - RIGHT VENTRICULAR HYPERTROPHY [None]
  - SOLITARY KIDNEY [None]
  - TACHYARRHYTHMIA [None]
  - TREMOR [None]
  - TRICUSPID VALVE INCOMPETENCE [None]
  - UPPER RESPIRATORY TRACT INFECTION [None]
  - VENTRICULAR HYPOPLASIA [None]
